FAERS Safety Report 23337008 (Version 1)
Quarter: 2023Q4

REPORT INFORMATION
  Report Type: Spontaneous
  Country: CN (occurrence: CN)
  Receive Date: 20231226
  Receipt Date: 20231226
  Transmission Date: 20240110
  Serious: Yes (Other)
  Sender: FDA-Public Use
  Company Number: CN-MLMSERVICE-20231211-4719120-1

PATIENT
  Age: 53 Year
  Sex: Female

DRUGS (4)
  1. OXALIPLATIN [Suspect]
     Active Substance: OXALIPLATIN
     Indication: Colon cancer stage III
     Route: 042
     Dates: start: 20180726, end: 20190217
  2. CAPECITABINE [Concomitant]
     Active Substance: CAPECITABINE
     Indication: Metastases to lymph nodes
     Route: 048
     Dates: start: 20180726, end: 20190217
  3. CAPECITABINE [Concomitant]
     Active Substance: CAPECITABINE
     Indication: Colon cancer stage III
     Route: 048
     Dates: start: 20180726, end: 20190217
  4. OXALIPLATIN [Suspect]
     Active Substance: OXALIPLATIN
     Indication: Metastases to lymph nodes
     Route: 042
     Dates: start: 20180726, end: 20190217

REACTIONS (1)
  - Nodular regenerative hyperplasia [Unknown]

NARRATIVE: CASE EVENT DATE: 20210101
